FAERS Safety Report 8883445 (Version 1)
Quarter: 2012Q4

REPORT INFORMATION
  Report Type: 
  Country: US (occurrence: US)
  Receive Date: 20121102
  Receipt Date: 20121102
  Transmission Date: 20130627
  Serious: No
  Sender: FDA-Public Use
  Company Number: US-ASTRAZENECA-2012SE28409

PATIENT
  Sex: Female

DRUGS (4)
  1. CRESTOR [Suspect]
     Indication: BLOOD CHOLESTEROL INCREASED
     Route: 048
     Dates: start: 2011
  2. AVISTA [Suspect]
     Indication: ANTIDEPRESSANT THERAPY
  3. ECOTRIN [Concomitant]
  4. LANTUS INSULIN [Concomitant]

REACTIONS (3)
  - Weight increased [Unknown]
  - Intentional drug misuse [Unknown]
  - Dizziness [Unknown]
